FAERS Safety Report 24622686 (Version 1)
Quarter: 2024Q4

REPORT INFORMATION
  Report Type: Spontaneous
  Country: CN (occurrence: CN)
  Receive Date: 20241115
  Receipt Date: 20241115
  Transmission Date: 20250115
  Serious: Yes (Other)
  Sender: GALDERMA
  Company Number: CN-GALDERMA-CN2024016519

PATIENT

DRUGS (1)
  1. BENZAC (BENZOYL PEROXIDE) [Suspect]
     Active Substance: BENZOYL PEROXIDE
     Indication: Acne
     Dosage: 0.01 GRAM, QD
     Route: 061
     Dates: start: 20241019, end: 20241026

REACTIONS (3)
  - Erythema multiforme [Recovering/Resolving]
  - Skin discharge [Recovering/Resolving]
  - Pruritus [Recovering/Resolving]

NARRATIVE: CASE EVENT DATE: 20241021
